FAERS Safety Report 7693767-0 (Version None)
Quarter: 2011Q3

REPORT INFORMATION
  Report Type: 
  Country: None (occurrence: None)
  Receive Date: 20110819
  Receipt Date: 20110809
  Transmission Date: 20111222
  Serious: Yes (Hospitalization)
  Sender: FDA-Public Use
  Company Number: US-JNJFOC-20110806324

PATIENT
  Sex: Male
  Weight: 64.41 kg

DRUGS (4)
  1. MESALAMINE [Concomitant]
     Route: 048
  2. CELEBREX [Concomitant]
  3. INFLIXIMAB, RECOMBINANT [Suspect]
     Indication: INFLAMMATORY BOWEL DISEASE
     Route: 042
     Dates: start: 20100413, end: 20110104
  4. HUMIRA [Concomitant]
     Indication: INFLAMMATORY BOWEL DISEASE
     Dates: start: 20110113

REACTIONS (1)
  - RECTAL HAEMORRHAGE [None]
